FAERS Safety Report 9799988 (Version 2)
Quarter: 2015Q3

REPORT INFORMATION
  Report Type: Spontaneous
  Country: US (occurrence: US)
  Receive Date: 20140106
  Receipt Date: 20150806
  Transmission Date: 20151125
  Serious: No
  Sender: FDA-Public Use
  Company Number: US-GILEAD-2010-0030499

PATIENT
  Age: 55 Year
  Sex: Male
  Weight: 79.83 kg

DRUGS (10)
  1. ADCIRCA [Concomitant]
     Active Substance: TADALAFIL
  2. REVATIO [Concomitant]
     Active Substance: SILDENAFIL CITRATE
  3. CELEXA [Concomitant]
     Active Substance: CITALOPRAM HYDROBROMIDE
  4. COUMADIN [Concomitant]
     Active Substance: WARFARIN SODIUM
  5. RESTORIL [Concomitant]
     Active Substance: TEMAZEPAM
  6. OXYCONTIN [Concomitant]
     Active Substance: OXYCODONE HYDROCHLORIDE
  7. LASIX [Concomitant]
     Active Substance: FUROSEMIDE
  8. CALCIUM [Concomitant]
     Active Substance: CALCIUM
  9. ALDACTONE [Concomitant]
     Active Substance: SPIRONOLACTONE
  10. LETAIRIS [Suspect]
     Active Substance: AMBRISENTAN
     Indication: PULMONARY ARTERIAL HYPERTENSION
     Route: 048
     Dates: start: 20080104

REACTIONS (1)
  - Syncope [Unknown]
